FAERS Safety Report 4349210-2 (Version None)
Quarter: 2004Q2

REPORT INFORMATION
  Report Type: 
  Country: None (occurrence: None)
  Receive Date: 20040428
  Receipt Date: 20040421
  Transmission Date: 20050107
  Serious: Yes (Other)
  Sender: FDA-Public Use
  Company Number: MY-ROCHE-365015

PATIENT
  Age: 82 Year
  Sex: Male

DRUGS (2)
  1. TICLOPIDINE HCL [Suspect]
     Indication: MYOCARDIAL INFARCTION
     Route: 048
     Dates: start: 20030719, end: 20030722
  2. FRAXIPARINE [Interacting]
     Indication: MYOCARDIAL INFARCTION
     Route: 058
     Dates: start: 20030721, end: 20030722

REACTIONS (2)
  - DRUG INTERACTION [None]
  - HAEMATEMESIS [None]
